FAERS Safety Report 4554236-X (Version None)
Quarter: 2004Q4

REPORT INFORMATION
  Report Type: 
  Country: None (occurrence: None)
  Receive Date: 20041230
  Receipt Date: 20040713
  Transmission Date: 20050328
  Serious: Yes (Death)
  Sender: FDA-Public Use
  Company Number: 04-07-1001

PATIENT
  Age: 37 Year
  Sex: Male

DRUGS (10)
  1. CLOZAPINE [Suspect]
     Indication: SCHIZOAFFECTIVE DISORDER
     Dosage: 300MG QHS ORAL
     Route: 048
     Dates: start: 20001114, end: 20040601
  2. AMARYL [Concomitant]
  3. METOCLOPRAMIDE [Concomitant]
  4. ALTACE [Concomitant]
  5. TRICOR [Concomitant]
  6. SONATA [Concomitant]
  7. PAXIL [Concomitant]
  8. RISPERDAL [Concomitant]
  9. DEPAKOTE [Concomitant]
  10. PERCOCET [Concomitant]

REACTIONS (2)
  - NO ADVERSE DRUG EFFECT [None]
  - ROAD TRAFFIC ACCIDENT [None]
